FAERS Safety Report 22106147 (Version 1)
Quarter: 2023Q1

REPORT INFORMATION
  Report Type: Spontaneous
  Country: US (occurrence: US)
  Receive Date: 20230317
  Receipt Date: 20230317
  Transmission Date: 20230418
  Serious: No
  Sender: FDA-Public Use
  Company Number: US-SA-SAC20230310000843

PATIENT

DRUGS (1)
  1. AMBIEN [Suspect]
     Active Substance: ZOLPIDEM TARTRATE
     Dosage: 5MG; QD
     Route: 065

REACTIONS (3)
  - Derealisation [Unknown]
  - Middle insomnia [Unknown]
  - Memory impairment [Unknown]
